FAERS Safety Report 12099702 (Version 1)
Quarter: 2016Q1

REPORT INFORMATION
  Report Type: Spontaneous
  Country: US (occurrence: None)
  Receive Date: 20160219
  Receipt Date: 20160219
  Transmission Date: 20160526
  Serious: No
  Sender: FDA-Public Use
  Company Number: None

PATIENT
  Age: 62 Year
  Sex: Male
  Weight: 143 kg

DRUGS (1)
  1. INFLIXIMAB [Suspect]
     Active Substance: INFLIXIMAB
     Dosage: 800MG OTHER IV
     Route: 042
     Dates: start: 20151209, end: 20151209

REACTIONS (1)
  - Urticaria [None]

NARRATIVE: CASE EVENT DATE: 20151209
